FAERS Safety Report 10506966 (Version 1)
Quarter: 2014Q4

REPORT INFORMATION
  Report Type: Spontaneous
  Country: US (occurrence: US)
  Receive Date: 20141009
  Receipt Date: 20141009
  Transmission Date: 20150528
  Serious: Yes (Hospitalization)
  Sender: FDA-Public Use
  Company Number: US-JNJFOC-20141004186

PATIENT
  Age: 67 Year
  Sex: Male

DRUGS (10)
  1. MAGNESIUM OXIDE. [Concomitant]
     Active Substance: MAGNESIUM OXIDE
  2. SANCTURA [Concomitant]
     Active Substance: TROSPIUM CHLORIDE
  3. VITAMIN B12 [Concomitant]
     Active Substance: CYANOCOBALAMIN
  4. IMBRUVICA [Suspect]
     Active Substance: IBRUTINIB
     Indication: CHRONIC LYMPHOCYTIC LEUKAEMIA
     Route: 048
     Dates: start: 20140917
  5. TAMSULOSIN [Concomitant]
     Active Substance: TAMSULOSIN
  6. ALLOPURINOL. [Concomitant]
     Active Substance: ALLOPURINOL
  7. ACYCLOVIR                          /00587301/ [Concomitant]
     Active Substance: ACYCLOVIR
  8. TRAMADOL [Concomitant]
     Active Substance: TRAMADOL
  9. CALCIUM [Concomitant]
     Active Substance: CALCIUM
  10. PYRIDIUM [Concomitant]
     Active Substance: PHENAZOPYRIDINE

REACTIONS (3)
  - Infection [Recovered/Resolved]
  - Decreased immune responsiveness [Recovered/Resolved]
  - Incorrect dose administered [Not Recovered/Not Resolved]

NARRATIVE: CASE EVENT DATE: 20140917
